FAERS Safety Report 10497040 (Version 2)
Quarter: 2014Q4

REPORT INFORMATION
  Report Type: Spontaneous
  Country: US (occurrence: US)
  Receive Date: 20141006
  Receipt Date: 20141006
  Transmission Date: 20150528
  Serious: No
  Sender: FDA-Public Use
  Company Number: US-DRREDDYS-USA/USA/14/0038339

PATIENT
  Age: 40 Year
  Sex: Female
  Weight: 65.83 kg

DRUGS (2)
  1. TOPAMAX [Concomitant]
     Active Substance: TOPIRAMATE
     Indication: PRODUCT USED FOR UNKNOWN INDICATION
     Route: 065
     Dates: start: 201303, end: 201309
  2. SUMATRIPTAN SUCCINATE TABLETS [Suspect]
     Active Substance: SUMATRIPTAN SUCCINATE
     Indication: MIGRAINE
     Route: 048
     Dates: start: 20130627

REACTIONS (5)
  - Speech disorder [Recovered/Resolved]
  - Hyperhidrosis [Recovered/Resolved]
  - Product quality issue [Unknown]
  - Drug ineffective [Unknown]
  - Muscle twitching [Recovered/Resolved]

NARRATIVE: CASE EVENT DATE: 20130627
